FAERS Safety Report 17462978 (Version 2)
Quarter: 2020Q1

REPORT INFORMATION
  Report Type: Spontaneous
  Country: JP (occurrence: JP)
  Receive Date: 20200226
  Receipt Date: 20200317
  Transmission Date: 20200409
  Serious: No
  Sender: FDA-Public Use
  Company Number: JP-GLAXOSMITHKLINE-JP2020JPN004182

PATIENT
  Age: 79 Year
  Sex: Female

DRUGS (17)
  1. AUGMENTIN [Suspect]
     Active Substance: AMOXICILLIN\CLAVULANATE POTASSIUM
     Indication: PNEUMONIA
  2. ERYTHROCIN [Concomitant]
     Active Substance: ERYTHROMYCIN LACTOBIONATE
     Dosage: UNK
     Route: 048
  3. SEREVENT DISKUS [Suspect]
     Active Substance: SALMETEROL XINAFOATE
     Dosage: UNK
     Route: 055
  4. BISOPROLOL FUMARATE TABLET [Concomitant]
     Dosage: UNK
  5. BROMHEXINE HYDROCHLORIDE [Concomitant]
     Active Substance: BROMHEXINE HYDROCHLORIDE
     Dosage: UNK
  6. AVELOX [Concomitant]
     Active Substance: MOXIFLOXACIN HYDROCHLORIDE
     Dosage: 1 DF
     Dates: start: 20191018
  7. NEXIUM CAPSULE [Concomitant]
     Dosage: UNK
  8. FUROSEMIDE. [Concomitant]
     Active Substance: FUROSEMIDE
     Indication: OEDEMA
     Dosage: UNK
     Dates: start: 20191023
  9. BLADDERON [Concomitant]
     Active Substance: FLAVOXATE
     Dosage: UNK
  10. MAGNESIUM OXIDE. [Concomitant]
     Active Substance: MAGNESIUM OXIDE
     Dosage: UNK
  11. NASONEX NASAL SOLUTIONS [Concomitant]
     Dosage: UNK
  12. AUGMENTIN [Suspect]
     Active Substance: AMOXICILLIN\CLAVULANATE POTASSIUM
     Indication: PYREXIA
     Dosage: 1 DF, TID AFTER EACH MEAL
     Route: 048
     Dates: start: 20191011, end: 20191013
  13. CELECOX [Concomitant]
     Active Substance: CELECOXIB
     Dosage: UNK
  14. CARBOCISTEINE TABLETS [Concomitant]
     Active Substance: CARBOCYSTEINE
     Dosage: UNK
     Route: 048
  15. AZOSEMIDE [Concomitant]
     Active Substance: AZOSEMIDE
     Dosage: UNK
  16. VORICONAZOLE. [Concomitant]
     Active Substance: VORICONAZOLE
     Dosage: UNK
  17. OLOPATADINE HYDROCHLORIDE OD [Concomitant]
     Dosage: UNK
     Route: 048

REACTIONS (4)
  - Urticaria [Recovered/Resolved]
  - Drug eruption [Recovered/Resolved]
  - Asthenia [Unknown]
  - Product use in unapproved indication [Unknown]

NARRATIVE: CASE EVENT DATE: 20191011
